FAERS Safety Report 7193470 (Version 7)
Quarter: 2012Q4

REPORT INFORMATION
  Report Type: 
  Country: US (occurrence: US)
  Receive Date: 20091130
  Receipt Date: 20121227
  Transmission Date: 20130627
  Serious: Yes (Death, Other)
  Sender: FDA-Public Use
  Company Number: US-BAYER-200940973NA

PATIENT
  Age: 46 Year
  Sex: Male
  Weight: 157 kg

DRUGS (19)
  1. TRASYLOL [Suspect]
     Indication: CORONARY ARTERY BYPASS GRAFT
     Dosage: test dose, 100 ml loading dose
     Route: 042
     Dates: start: 20030801
  2. SUPRACAINE [Concomitant]
     Dosage: UNK
     Dates: start: 20030801, end: 20030801
  3. VERSED [Concomitant]
     Dosage: UNK
     Dates: start: 20030801, end: 20030801
  4. FENTANYL [Concomitant]
     Dosage: UNK
     Dates: start: 20030801, end: 20030801
  5. PAVULON [Concomitant]
     Dosage: UNK
     Dates: start: 20030801, end: 20030801
  6. CARDIZEM [Concomitant]
     Dosage: UNK
     Dates: start: 20030801
  7. NITROGLYCERIN [Concomitant]
     Dosage: 0.4 mg, PRN
     Dates: start: 20030801
  8. ANCEF [Concomitant]
     Dosage: 1 g, UNK
     Dates: start: 20030801, end: 20030801
  9. HEPARIN [Concomitant]
     Dosage: 46000 u, UNK
     Dates: start: 20030801, end: 20030801
  10. PROTAMINE [Concomitant]
     Dosage: 450 mg, UNK
     Dates: start: 20030801, end: 20030801
  11. AMICAR [Concomitant]
     Dosage: 5 g, UNK
  12. PLASMA [Concomitant]
     Dosage: 2 u, UNK
     Dates: start: 20030801
  13. PLATELETS, HUMAN BLOOD [Concomitant]
     Dosage: 1 u, UNK
     Dates: start: 20030801
  14. PLAVIX [Concomitant]
     Dosage: 75 mg, QD
  15. ACETYLSALICYLIC ACID (} 100 MG) [Concomitant]
     Dosage: UNK UNK, QD
  16. DOPAMINE [Concomitant]
  17. LORTAB [Concomitant]
  18. NARCAN [Concomitant]
  19. METHOTREXATE [Concomitant]

REACTIONS (15)
  - Death [Fatal]
  - Multi-organ failure [Unknown]
  - Renal failure acute [None]
  - Renal failure [Unknown]
  - Renal injury [Unknown]
  - Injury [Unknown]
  - Anxiety [Unknown]
  - Unevaluable event [Unknown]
  - Fear [Unknown]
  - Pain [Unknown]
  - Unevaluable event [Unknown]
  - Depression [Unknown]
  - Anhedonia [Unknown]
  - Disability [Unknown]
  - Anxiety [Unknown]
